FAERS Safety Report 14372315 (Version 1)
Quarter: 2018Q1

REPORT INFORMATION
  Report Type: Spontaneous
  Country: US (occurrence: US)
  Receive Date: 20180110
  Receipt Date: 20180110
  Transmission Date: 20180509
  Serious: Yes (Other)
  Sender: FDA-Public Use
  Company Number: US-PFIZER INC-2018004889

PATIENT
  Age: 61 Year
  Sex: Female
  Weight: 104.3 kg

DRUGS (6)
  1. DILANTIN [Suspect]
     Active Substance: PHENYTOIN
     Dosage: 150 MG, DAILY THE NIGHT
  2. DILANTIN [Suspect]
     Active Substance: PHENYTOIN
     Indication: EPILEPSY
     Dosage: 400 MG, DAILY (FOUR 100MG CAPSULES AND 30MG CAPSULE DAILY AT NIGHT)
  3. DILANTIN [Suspect]
     Active Substance: PHENYTOIN
     Dosage: 500 MG, UNK (FOR A FEW WEEKS)
  4. DILANTIN [Suspect]
     Active Substance: PHENYTOIN
     Dosage: 430 MG, DAILY
  5. DILANTIN [Suspect]
     Active Substance: PHENYTOIN
     Dosage: 30 MG, 1X/DAY (FOUR 100MG CAPSULES AND 30MG CAPSULE DAILY AT NIGHT)
  6. DILANTIN [Suspect]
     Active Substance: PHENYTOIN
     Dosage: 400 MG, UNK

REACTIONS (9)
  - Tremor [Unknown]
  - Intentional product misuse [Unknown]
  - Toxicity to various agents [Unknown]
  - Stress [Unknown]
  - Anxiety [Unknown]
  - Drug withdrawal syndrome [Unknown]
  - Anticonvulsant drug level abnormal [Unknown]
  - Cerebrovascular accident [Unknown]
  - Drug dose omission [Unknown]
